FAERS Safety Report 20309392 (Version 1)
Quarter: 2022Q1

REPORT INFORMATION
  Report Type: Spontaneous
  Country: US (occurrence: US)
  Receive Date: 20220107
  Receipt Date: 20220107
  Transmission Date: 20220423
  Serious: Yes (Death, Hospitalization)
  Sender: FDA-Public Use
  Company Number: US-BAYER-2022A001896

PATIENT
  Age: 47 Year
  Sex: Female

DRUGS (12)
  1. NAPROXEN SODIUM [Suspect]
     Active Substance: NAPROXEN SODIUM
     Route: 048
  2. BUPROPION [Suspect]
     Active Substance: BUPROPION
  3. QUETIAPINE [Suspect]
     Active Substance: QUETIAPINE
  4. CLONIDINE [Suspect]
     Active Substance: CLONIDINE
  5. PRAZOSIN [Suspect]
     Active Substance: PRAZOSIN
  6. LAMOTRIGINE [Suspect]
     Active Substance: LAMOTRIGINE
  7. SERTRALINE [Suspect]
     Active Substance: SERTRALINE HYDROCHLORIDE
  8. ALPRAZOLAM [Suspect]
     Active Substance: ALPRAZOLAM
  9. BUSPIRONE [Suspect]
     Active Substance: BUSPIRONE HYDROCHLORIDE
  10. ACETAMINOPHEN [Suspect]
     Active Substance: ACETAMINOPHEN
  11. CLONAZEPAM [Suspect]
     Active Substance: CLONAZEPAM
  12. PHENYLEPHRINE [Suspect]
     Active Substance: PHENYLEPHRINE HYDROCHLORIDE

REACTIONS (2)
  - Completed suicide [Fatal]
  - Toxicity to various agents [Fatal]
